FAERS Safety Report 7023330-6 (Version None)
Quarter: 2010Q3

REPORT INFORMATION
  Report Type: 
  Country: None (occurrence: None)
  Receive Date: 20100930
  Receipt Date: 20100819
  Transmission Date: 20110219
  Serious: Yes (Hospitalization, Other)
  Sender: FDA-Public Use
  Company Number: US-BAXTER-2010BH003655

PATIENT
  Age: 68 Year
  Sex: Male
  Weight: 88 kg

DRUGS (9)
  1. HEPARIN SODIUM INJECTION [Suspect]
     Indication: CORONARY ARTERY BYPASS
     Route: 042
     Dates: start: 20080512, end: 20080501
  2. HEPARIN SODIUM INJECTION [Suspect]
     Indication: CATHETERISATION CARDIAC
     Route: 042
     Dates: start: 20080512, end: 20080501
  3. HEPARIN SODIUM INJECTION [Suspect]
     Route: 042
     Dates: start: 20080519, end: 20080601
  4. HEPARIN SODIUM INJECTION [Suspect]
     Route: 042
     Dates: start: 20080519, end: 20080601
  5. ACETYLSALICYLIC ACID SRT [Concomitant]
     Indication: PRODUCT USED FOR UNKNOWN INDICATION
     Route: 048
  6. ATENOLOL [Concomitant]
     Indication: PRODUCT USED FOR UNKNOWN INDICATION
     Route: 048
  7. HYDROCHLOROTHIAZIDE [Concomitant]
     Indication: HYPERTENSION
     Route: 048
  8. SIMVASTATIN [Concomitant]
     Indication: PRODUCT USED FOR UNKNOWN INDICATION
     Route: 048
  9. LISINOPRIL [Concomitant]
     Indication: PRODUCT USED FOR UNKNOWN INDICATION
     Route: 048

REACTIONS (12)
  - BLISTER [None]
  - HEPARIN-INDUCED THROMBOCYTOPENIA [None]
  - HYPOTENSION [None]
  - KLEBSIELLA BACTERAEMIA [None]
  - NAUSEA [None]
  - PAIN [None]
  - RENAL FAILURE ACUTE [None]
  - RESPIRATORY TRACT INFECTION [None]
  - SWELLING [None]
  - SYNCOPE [None]
  - THROMBOSIS [None]
  - VOMITING [None]
